FAERS Safety Report 10970201 (Version 1)
Quarter: 2015Q1

REPORT INFORMATION
  Report Type: Spontaneous
  Country: BR (occurrence: BR)
  Receive Date: 20150331
  Receipt Date: 20150331
  Transmission Date: 20150721
  Serious: Yes (Other)
  Sender: FDA-Public Use
  Company Number: BR-ROCHE-1556312

PATIENT
  Sex: Male
  Weight: 70 kg

DRUGS (4)
  1. CLONAZEPAM. [Suspect]
     Active Substance: CLONAZEPAM
     Indication: INSOMNIA
  2. RIVOTRIL [Suspect]
     Active Substance: CLONAZEPAM
     Indication: INSOMNIA
  3. RIVOTRIL [Suspect]
     Active Substance: CLONAZEPAM
     Indication: ANXIETY
     Route: 065
     Dates: start: 2013
  4. CLONAZEPAM. [Suspect]
     Active Substance: CLONAZEPAM
     Indication: ANXIETY
     Route: 065

REACTIONS (10)
  - Drug dose omission [Unknown]
  - Memory impairment [Unknown]
  - Incorrect dose administered [Unknown]
  - Self injurious behaviour [Unknown]
  - Drug abuse [Unknown]
  - Gait disturbance [Unknown]
  - Drug ineffective [Unknown]
  - Sleep disorder [Unknown]
  - Seizure [Unknown]
  - Withdrawal syndrome [Unknown]
